FAERS Safety Report 6314071-9 (Version None)
Quarter: 2009Q3

REPORT INFORMATION
  Report Type: 
  Country: None (occurrence: None)
  Receive Date: 20090818
  Receipt Date: 20090813
  Transmission Date: 20100115
  Serious: Yes (Other)
  Sender: FDA-Public Use
  Company Number: US-ABBOTT-09P-163-0591057-00

PATIENT
  Age: 30 Year
  Sex: Female

DRUGS (3)
  1. KALETRA [Suspect]
     Indication: HIV INFECTION
     Route: 048
  2. ZIDOVUDINE [Suspect]
     Indication: HIV INFECTION
     Route: 048
  3. ATAZANAVIR SULFATE [Suspect]
     Indication: HIV INFECTION
     Route: 048

REACTIONS (1)
  - ABORTION SPONTANEOUS [None]
